FAERS Safety Report 7204103-8 (Version None)
Quarter: 2010Q4

REPORT INFORMATION
  Report Type: 
  Country: None (occurrence: None)
  Receive Date: 20101230
  Receipt Date: 20101228
  Transmission Date: 20110411
  Serious: Yes (Other)
  Sender: FDA-Public Use
  Company Number: JP-PFIZER INC-2010180363

PATIENT
  Age: 50 Year
  Sex: Female

DRUGS (2)
  1. CAMPTOSAR [Suspect]
     Indication: OVARIAN CANCER
     Dosage: UNK
     Route: 041
  2. CISPLATIN [Suspect]
     Indication: OVARIAN CANCER
     Dosage: UNK
     Route: 041

REACTIONS (1)
  - HEPATITIS B [None]
